FAERS Safety Report 4690673-0 (Version None)
Quarter: 2005Q2

REPORT INFORMATION
  Report Type: 
  Country: None (occurrence: None)
  Receive Date: 20050614
  Receipt Date: 20050614
  Transmission Date: 20051028
  Serious: Yes (Life-Threatening, Hospitalization)
  Sender: FDA-Public Use
  Company Number: None

PATIENT
  Age: 50 Year
  Sex: Male
  Weight: 56.246 kg

DRUGS (14)
  1. ZOSYN [Suspect]
     Indication: PNEUMONIA ASPIRATION
     Dosage: 3.375 GM EVERY 6 HOURS INTRAVENOU
     Route: 042
     Dates: start: 20050312, end: 20050329
  2. OMEPRAZOLE [Suspect]
     Indication: GASTROOESOPHAGEAL REFLUX DISEASE
     Dosage: 20 MG EVERY MORNING ORAL
     Route: 048
     Dates: start: 20050309, end: 20050403
  3. OMEPRAZOLE [Suspect]
     Indication: ULCER
     Dosage: 20 MG EVERY MORNING ORAL
     Route: 048
     Dates: start: 20050309, end: 20050403
  4. ENOXAPARIN SODIUM [Concomitant]
  5. ALBUTEROL [Concomitant]
  6. HALOPERIDOL [Concomitant]
  7. INSULIN [Concomitant]
  8. IPRATROPIUM BROMIDE [Concomitant]
  9. PNEUMOVAX 23 [Concomitant]
  10. MORPHINE [Concomitant]
  11. VANCOMYCIN [Concomitant]
  12. . [Concomitant]
  13. . [Concomitant]
  14. . [Concomitant]

REACTIONS (10)
  - ANAPHYLACTIC REACTION [None]
  - BODY TEMPERATURE INCREASED [None]
  - DRUG INTERACTION [None]
  - NEPHRITIS ALLERGIC [None]
  - NEPHRITIS INTERSTITIAL [None]
  - PNEUMONIA ASPIRATION [None]
  - RASH [None]
  - RENAL FAILURE ACUTE [None]
  - RESPIRATORY ACIDOSIS [None]
  - RESPIRATORY DISTRESS [None]
